FAERS Safety Report 12626604 (Version 1)
Quarter: 2016Q3

REPORT INFORMATION
  Report Type: Spontaneous
  Country: US (occurrence: US)
  Receive Date: 20160805
  Receipt Date: 20160805
  Transmission Date: 20161109
  Serious: No
  Sender: FDA-Public Use
  Company Number: US-BAYER-2016-150834

PATIENT
  Age: 37 Year
  Sex: Female

DRUGS (2)
  1. GADAVIST [Suspect]
     Active Substance: GADOBUTROL
     Indication: NUCLEAR MAGNETIC RESONANCE IMAGING SPINAL
  2. GADAVIST [Suspect]
     Active Substance: GADOBUTROL
     Indication: NUCLEAR MAGNETIC RESONANCE IMAGING
     Dosage: 5.5 ML, ONCE
     Route: 042
     Dates: start: 20160801, end: 20160801

REACTIONS (3)
  - Eye pruritus [None]
  - Conjunctivitis [None]
  - Erythema [None]

NARRATIVE: CASE EVENT DATE: 20160801
